FAERS Safety Report 12560279 (Version 1)
Quarter: 2016Q3

REPORT INFORMATION
  Report Type: Spontaneous
  Country: US (occurrence: US)
  Receive Date: 20160715
  Receipt Date: 20160715
  Transmission Date: 20161109
  Serious: No
  Sender: FDA-Public Use
  Company Number: US-JNJFOC-20160626819

PATIENT
  Age: 74 Year
  Sex: Female
  Weight: 102.06 kg

DRUGS (20)
  1. ASPIRIN. [Concomitant]
     Active Substance: ASPIRIN
     Indication: PROPHYLAXIS
     Dosage: YEARS
     Route: 065
  2. IRON [Concomitant]
     Active Substance: IRON
     Indication: ROUTINE HEALTH MAINTENANCE
     Dosage: YEARS
     Route: 065
  3. FISH OIL [Concomitant]
     Active Substance: FISH OIL
     Indication: ROUTINE HEALTH MAINTENANCE
     Dosage: YEARS
     Route: 065
  4. PRESERVISION [Concomitant]
     Active Substance: MINERALS\VITAMINS
     Indication: PROPHYLAXIS
     Dosage: 1 IN AM, 1 IN EVE
     Route: 065
  5. ZINETAC [Concomitant]
     Indication: BARRETT^S OESOPHAGUS
     Dosage: AS NEEDED FOR YEARS
     Route: 065
  6. WOMENS ROGAINE [Suspect]
     Active Substance: MINOXIDIL
     Route: 061
  7. METFORMIN [Concomitant]
     Active Substance: METFORMIN HYDROCHLORIDE
     Indication: DIABETES MELLITUS
     Dosage: YEARS
     Route: 065
  8. COMBIVENT [Concomitant]
     Active Substance: ALBUTEROL SULFATE\IPRATROPIUM BROMIDE
     Indication: ALLERGIC BRONCHITIS
     Dosage: TWO TIMES IN MORNING AND TWO TIMES AT NIGHT FROM 8 YEARS
     Route: 065
  9. LASIX [Concomitant]
     Active Substance: FUROSEMIDE
     Indication: FLUID RETENTION
     Dosage: FOR YEARS
     Route: 065
  10. BIOTIN [Concomitant]
     Active Substance: BIOTIN
     Indication: ROUTINE HEALTH MAINTENANCE
     Route: 065
  11. LOSARTAN. [Concomitant]
     Active Substance: LOSARTAN
     Indication: HYPERTENSION
     Dosage: YEARS
     Route: 065
  12. PIROXICAM. [Concomitant]
     Active Substance: PIROXICAM
     Indication: ARTHRITIS
     Dosage: YEARS
     Route: 065
  13. SYNTHROID [Concomitant]
     Active Substance: LEVOTHYROXINE SODIUM
     Indication: HYPOTHYROIDISM
     Dosage: FOR 5 YEARS
     Route: 065
  14. ZINETAC [Concomitant]
     Indication: GASTROOESOPHAGEAL REFLUX DISEASE
     Dosage: AS NEEDED FOR YEARS
     Route: 065
  15. CALCIUM CITRATE [Concomitant]
     Active Substance: CALCIUM CITRATE
     Indication: ROUTINE HEALTH MAINTENANCE
     Dosage: 2 DOSES AT NIGHT, 1 AT NIGHT FROM YEARS
     Route: 065
  16. WOMENS ROGAINE [Suspect]
     Active Substance: MINOXIDIL
     Indication: ALOPECIA
     Route: 061
  17. PREVACID [Concomitant]
     Active Substance: LANSOPRAZOLE
     Indication: GASTROOESOPHAGEAL REFLUX DISEASE
     Dosage: FOR YEARS
     Route: 065
  18. GLUCOSAMINE [Concomitant]
     Active Substance: GLUCOSAMINE
     Indication: ARTHRITIS
     Dosage: 3 DOSES IN AM AND 2 DOSES AT NIGHT, YEARS
     Route: 065
  19. GLYCINE. [Concomitant]
     Active Substance: GLYCINE
     Indication: ANTIVIRAL PROPHYLAXIS
     Dosage: YEARS
     Route: 065
  20. SIMVASTATIN. [Concomitant]
     Active Substance: SIMVASTATIN
     Indication: BLOOD CHOLESTEROL INCREASED
     Dosage: FOR 5 YEARS
     Route: 065

REACTIONS (3)
  - Underdose [Unknown]
  - Weight decreased [Unknown]
  - Skull malformation [Not Recovered/Not Resolved]
